FAERS Safety Report 8530706-4 (Version None)
Quarter: 2012Q3

REPORT INFORMATION
  Report Type: 
  Country: None (occurrence: None)
  Receive Date: 20120723
  Receipt Date: 20120709
  Transmission Date: 20120928
  Serious: Yes (Hospitalization, Other)
  Sender: FDA-Public Use
  Company Number: JP-FRI-1000036624

PATIENT
  Sex: Female

DRUGS (6)
  1. MEMANTINE HCL [Suspect]
     Indication: DEMENTIA ALZHEIMER'S TYPE
     Dosage: 5 MG
     Route: 048
     Dates: start: 20120417, end: 20120423
  2. MEMANTINE HCL [Suspect]
     Dosage: 15 MG
     Route: 048
     Dates: start: 20120501, end: 20120507
  3. URSAMIC [Concomitant]
     Dosage: 300 MG
     Route: 048
  4. LANSOPRAZOLE [Concomitant]
     Dosage: 90 MG
     Route: 048
  5. MEMANTINE HCL [Suspect]
     Dosage: 10 MG
     Route: 048
     Dates: start: 20120424, end: 20120430
  6. MEMANTINE HCL [Suspect]
     Dosage: 20 MG
     Route: 048
     Dates: start: 20120508, end: 20120522

REACTIONS (3)
  - PANCYTOPENIA [None]
  - DIZZINESS [None]
  - SOMNOLENCE [None]
